FAERS Safety Report 22053628 (Version 1)
Quarter: 2023Q1

REPORT INFORMATION
  Report Type: Spontaneous
  Country: DE (occurrence: DE)
  Receive Date: 20230302
  Receipt Date: 20230302
  Transmission Date: 20230417
  Serious: Yes (Death, Other)
  Sender: FDA-Public Use
  Company Number: DE-AMK-263599

PATIENT
  Age: 99 Year
  Sex: Female

DRUGS (9)
  1. FRAGMIN [Suspect]
     Active Substance: DALTEPARIN SODIUM
     Indication: Thrombosis prophylaxis
     Dosage: 5.000 I.E./D
     Route: 058
     Dates: start: 20230106, end: 20230109
  2. TORSEMIDE [Concomitant]
     Active Substance: TORSEMIDE
     Indication: Hypertension
     Dosage: 1/0/0
     Route: 048
     Dates: end: 20230111
  3. PIRITRAMIDE [Concomitant]
     Active Substance: PIRITRAMIDE
     Indication: Pain
     Dosage: FREQ:6 H;0,25/0,25/0,25/0.25
     Route: 058
     Dates: start: 20230109, end: 20230111
  4. POLYETHYLENE GLYCOLS [Concomitant]
     Active Substance: POLYETHYLENE GLYCOLS
     Indication: Constipation
     Dosage: 1/0/0
     Route: 048
     Dates: start: 20230109, end: 20230111
  5. PANTOPRAZOLE [Concomitant]
     Active Substance: PANTOPRAZOLE
     Indication: Prophylaxis against gastrointestinal ulcer
     Dosage: 0/0/1
     Route: 048
     Dates: start: 20230109, end: 20230111
  6. BISOPROLOL [Concomitant]
     Active Substance: BISOPROLOL
     Indication: Hypertension
     Dosage: 1/0/0
     Route: 048
     Dates: start: 20230109, end: 20230111
  7. MELPERONE [Concomitant]
     Active Substance: MELPERONE
     Indication: Mental disorder
     Dosage: 0/0/0/1
     Route: 048
     Dates: end: 20230111
  8. MELPERONE [Concomitant]
     Active Substance: MELPERONE
     Indication: Autonomic nervous system imbalance
  9. PIPERACILLIN SODIUM\TAZOBACTAM SODIUM [Concomitant]
     Active Substance: PIPERACILLIN SODIUM\TAZOBACTAM SODIUM
     Indication: Pneumonia
     Dosage: 1/1/0/1
     Route: 042
     Dates: start: 20230109, end: 20230111

REACTIONS (3)
  - Gastrointestinal haemorrhage [Fatal]
  - Shock haemorrhagic [Fatal]
  - Overdose [Unknown]

NARRATIVE: CASE EVENT DATE: 20230111
